FAERS Safety Report 23326028 (Version 2)
Quarter: 2024Q1

REPORT INFORMATION
  Report Type: Spontaneous
  Country: CA (occurrence: CA)
  Receive Date: 20231221
  Receipt Date: 20240213
  Transmission Date: 20240410
  Serious: Yes (Other)
  Sender: FDA-Public Use
  Company Number: CA-PFIZER INC-202201271445

PATIENT
  Age: 79 Year
  Sex: Female

DRUGS (3)
  1. ABRILADA [Suspect]
     Active Substance: ADALIMUMAB-AFZB
     Indication: Uveitis
     Dosage: 80 MG WEEK 0=80MG THEN 40MG EVERY OTHER WEEK
     Route: 058
     Dates: start: 20221107
  2. ABRILADA [Suspect]
     Active Substance: ADALIMUMAB-AFZB
     Indication: Chorioretinitis
     Dosage: 40 MG, WEEKLY
     Route: 058
     Dates: start: 2023, end: 2023
  3. MYCOPHENOLIC ACID [Concomitant]
     Active Substance: MYCOPHENOLIC ACID
     Indication: Immunosuppression
     Dosage: UNK

REACTIONS (7)
  - Cystoid macular oedema [Not Recovered/Not Resolved]
  - Visual impairment [Unknown]
  - Swelling [Unknown]
  - Incorrect dose administered by device [Unknown]
  - Device defective [Unknown]
  - Device leakage [Unknown]
  - Off label use [Unknown]

NARRATIVE: CASE EVENT DATE: 20230101
